FAERS Safety Report 4944281-4 (Version None)
Quarter: 2006Q1

REPORT INFORMATION
  Report Type: 
  Country: None (occurrence: None)
  Receive Date: 20060315
  Receipt Date: 20051206
  Transmission Date: 20060701
  Serious: Yes (Other)
  Sender: FDA-Public Use
  Company Number: IE-GLAXOSMITHKLINE-B0403122A

PATIENT
  Age: 32 Year
  Sex: Female
  Weight: 54.5 kg

DRUGS (2)
  1. SERETIDE [Suspect]
     Indication: ASTHMA
     Dosage: 2PUFF TWICE PER DAY
     Route: 055
     Dates: start: 20041201
  2. VENTOLIN [Suspect]
     Dosage: 2PUFF AS REQUIRED
     Route: 055

REACTIONS (2)
  - ASTHMA [None]
  - DRUG EXPOSURE DURING PREGNANCY [None]
